FAERS Safety Report 13671594 (Version 1)
Quarter: 2017Q2

REPORT INFORMATION
  Report Type: Spontaneous
  Country: US (occurrence: US)
  Receive Date: 20170620
  Receipt Date: 20170620
  Transmission Date: 20170830
  Serious: Yes (Hospitalization)
  Sender: FDA-Public Use
  Company Number: None

PATIENT
  Age: 0 Year
  Sex: Male

DRUGS (1)
  1. HYDROCHLOROTHIAZIDE. [Suspect]
     Active Substance: HYDROCHLOROTHIAZIDE
     Indication: HYPERTENSION
     Route: 048
     Dates: start: 20170419, end: 20170430

REACTIONS (6)
  - Feeding disorder [None]
  - Nausea [None]
  - Abdominal pain [None]
  - Hyponatraemia [None]
  - Pyrexia [None]
  - Hypercalcaemia [None]

NARRATIVE: CASE EVENT DATE: 20170419
